FAERS Safety Report 4879341-X (Version None)
Quarter: 2006Q1

REPORT INFORMATION
  Report Type: 
  Country: None (occurrence: None)
  Receive Date: 20060112
  Receipt Date: 20060105
  Transmission Date: 20060701
  Serious: Yes (Hospitalization, Disabling)
  Sender: FDA-Public Use
  Company Number: AU-MERCK-0601AUS00059

PATIENT
  Age: 81 Year
  Sex: Female

DRUGS (1)
  1. FOSAMAX [Suspect]
     Indication: OSTEOPOROSIS
     Route: 048
     Dates: end: 20050801

REACTIONS (5)
  - CYST [None]
  - DRY MOUTH [None]
  - DYSPHAGIA [None]
  - SALIVARY HYPERSECRETION [None]
  - THROAT TIGHTNESS [None]
